FAERS Safety Report 6715290-X (Version None)
Quarter: 2010Q2

REPORT INFORMATION
  Report Type: 
  Country: None (occurrence: None)
  Receive Date: 20100506
  Receipt Date: 20100506
  Transmission Date: 20101027
  Serious: Yes (Other)
  Sender: FDA-Public Use
  Company Number: None

PATIENT
  Sex: Male
  Weight: 93.441 kg

DRUGS (12)
  1. GABAPENTIN [Suspect]
     Indication: PAIN
     Dosage: TOOK 1 TABLET
  2. GABAPENTIN [Suspect]
     Indication: SURGERY
     Dosage: TOOK 1 TABLET
  3. PREDNISONE [Concomitant]
  4. IMURAN [Concomitant]
  5. IMMODIUM-IMITREX [Concomitant]
  6. PROSAC [Concomitant]
  7. LITHIUM CARBONATE [Concomitant]
  8. KLONOPIN [Concomitant]
  9. METOPROLOL SUCCINATE [Concomitant]
  10. CALCIUM [Concomitant]
  11. POTASSIUM [Concomitant]
  12. PRILOSEC [Concomitant]

REACTIONS (3)
  - DEPRESSION [None]
  - DISORIENTATION [None]
  - SUICIDAL IDEATION [None]
